FAERS Safety Report 15395080 (Version 3)
Quarter: 2019Q1

REPORT INFORMATION
  Report Type: Report from Study
  Country: None (occurrence: CH)
  Receive Date: 20180918
  Receipt Date: 20190222
  Transmission Date: 20190417
  Serious: Yes (Hospitalization)
  Sender: FDA-Public Use
  Company Number: CH-ABBVIE-18S-151-2487808-00

PATIENT
  Sex: Male

DRUGS (12)
  1. DUODOPA [Suspect]
     Active Substance: CARBIDOPA\LEVODOPA
     Indication: PARKINSONISM
     Route: 050
     Dates: start: 20171213, end: 20171221
  2. CALCIMAGON D3 [Concomitant]
     Active Substance: CALCIUM\CHOLECALCIFEROL
     Indication: PRODUCT USED FOR UNKNOWN INDICATION
     Dosage: MORNING
  3. GUTRON [Concomitant]
     Active Substance: MIDODRINE
     Indication: PRODUCT USED FOR UNKNOWN INDICATION
     Dosage: MORNING, NOON, EVENING
  4. DUODOPA [Suspect]
     Active Substance: CARBIDOPA\LEVODOPA
     Dosage: MD 3ML; CRD 2.8ML/H; CRN 1.7ML/H; ED 0.5ML?24H THERAPY
     Route: 050
     Dates: start: 20180105, end: 20180910
  5. DUODOPA [Suspect]
     Active Substance: CARBIDOPA\LEVODOPA
     Dosage: MD 3ML; CR-DAY 3.0ML/H; CR-NIGHT 2.0ML/H; ED2.0ML; LOCK TIME 1H?24H THERAPY
     Route: 050
     Dates: start: 20180910
  6. NOVALGIN [Concomitant]
     Indication: PRODUCT USED FOR UNKNOWN INDICATION
     Dosage: MORNING, NOON, EVENING
  7. DUODOPA [Suspect]
     Active Substance: CARBIDOPA\LEVODOPA
     Dosage: MD 3.1 ML; CR DAY 3.0ML/H; CR NIGHT 2.0ML/H; ED 2.0ML; LOCK TIME 1H, 24H THERAPY
     Route: 050
     Dates: start: 20190213
  8. DUODOPA [Suspect]
     Active Substance: CARBIDOPA\LEVODOPA
     Dosage: MD 3.1 ML; CR-DAY 3.0ML/H; CR NIGHT 2.0ML/H; ED 2.0ML, 24H THERAPY
     Route: 050
     Dates: end: 20190213
  9. PREGABALIN. [Concomitant]
     Active Substance: PREGABALIN
     Indication: PRODUCT USED FOR UNKNOWN INDICATION
     Dosage: MORNING, EVENING
  10. DUODOPA [Suspect]
     Active Substance: CARBIDOPA\LEVODOPA
     Dosage: MD 3ML; CRD 2.8ML/H; CRN1.6ML/H; ED0.5ML?24H THERAPY
     Route: 050
     Dates: start: 20171221, end: 20180105
  11. DUODOPA [Suspect]
     Active Substance: CARBIDOPA\LEVODOPA
     Dosage: MD 3ML; CR-DAY 3.0ML/H; CR-NIGHT 2.0ML/H; ED2.0ML; LOCK TIME 1H?24H THERAPY
     Route: 050
  12. REQUIP [Concomitant]
     Active Substance: ROPINIROLE HYDROCHLORIDE
     Indication: PRODUCT USED FOR UNKNOWN INDICATION
     Dosage: RET.?MORNING

REACTIONS (9)
  - Back disorder [Unknown]
  - Off label use [Recovered/Resolved]
  - Akinesia [Recovering/Resolving]
  - Balance disorder [Recovered/Resolved]
  - Fall [Recovered/Resolved]
  - Malaise [Recovered/Resolved]
  - Device dislocation [Unknown]
  - Social problem [Unknown]
  - On and off phenomenon [Recovering/Resolving]

NARRATIVE: CASE EVENT DATE: 2018
